FAERS Safety Report 9345014 (Version 1)
Quarter: 2013Q2

REPORT INFORMATION
  Report Type: Spontaneous
  Country: CA (occurrence: CA)
  Receive Date: 20130612
  Receipt Date: 20130612
  Transmission Date: 20140414
  Serious: Yes (Hospitalization)
  Sender: FDA-Public Use
  Company Number: CA-PERRIGO-13CA005971

PATIENT
  Age: 80 Year
  Sex: Female

DRUGS (3)
  1. MORPHINE SULFATE 20 MG/ML 0L8 [Suspect]
     Dosage: 5 MG, PRN
     Route: 065
  2. ACETAMINOPHEN W/CODEINE [Concomitant]
     Indication: BONE PAIN
     Dosage: 325MG
     Route: 065
  3. HYDROMORPHONE [Concomitant]
     Indication: BONE PAIN
     Route: 065

REACTIONS (4)
  - Colonic pseudo-obstruction [Recovered/Resolved]
  - Abdominal distension [Recovered/Resolved]
  - Intestinal dilatation [Recovered/Resolved]
  - Constipation [Recovered/Resolved]
